FAERS Safety Report 23658306 (Version 2)
Quarter: 2024Q2

REPORT INFORMATION
  Report Type: Spontaneous
  Country: US (occurrence: US)
  Receive Date: 20240321
  Receipt Date: 20240606
  Transmission Date: 20240715
  Serious: Yes (Death, Other)
  Sender: FDA-Public Use
  Company Number: US-INCYTE CORPORATION-2024IN003008

PATIENT

DRUGS (17)
  1. JAKAFI [Suspect]
     Active Substance: RUXOLITINIB
     Indication: Polycythaemia vera
     Dosage: 15 MILLIGRAM, QD
     Route: 048
     Dates: start: 20230211
  2. AMANTADINE [Concomitant]
     Active Substance: AMANTADINE
     Indication: Product used for unknown indication
     Dosage: 100 MILLIGRAM
     Route: 065
  3. BAYER LOW DOSE [Concomitant]
     Active Substance: ASPIRIN
     Indication: Product used for unknown indication
     Dosage: 81 MILLIGRAM
     Route: 065
  4. BRIMONIDINE [Concomitant]
     Active Substance: BRIMONIDINE TARTRATE
     Indication: Product used for unknown indication
     Dosage: 0.2 PERCENT
     Route: 065
  5. CALCIUM [Concomitant]
     Active Substance: CALCIUM
     Indication: Product used for unknown indication
     Dosage: 600 MILLIGRAM
     Route: 065
  6. CARBIDOPA\LEVODOPA [Concomitant]
     Active Substance: CARBIDOPA\LEVODOPA
     Indication: Product used for unknown indication
     Dosage: 25-100MG
     Route: 065
  7. CARBIDOPA\LEVODOPA [Concomitant]
     Active Substance: CARBIDOPA\LEVODOPA
     Dosage: 50-200MG ER TAB
     Route: 065
  8. FISH OIL [Concomitant]
     Active Substance: FISH OIL
     Indication: Product used for unknown indication
     Dosage: 1200 MILLIGRAM
     Route: 065
  9. FOLIC ACID [Concomitant]
     Active Substance: FOLIC ACID
     Indication: Product used for unknown indication
     Dosage: 1 MILLIGRAM
     Route: 065
  10. LUMIGAN [Concomitant]
     Active Substance: BIMATOPROST
     Indication: Product used for unknown indication
     Dosage: 0.01 PERCENT
     Route: 065
  11. MINERALS\VITAMINS [Concomitant]
     Active Substance: MINERALS\VITAMINS
     Indication: Product used for unknown indication
     Route: 065
  12. TIMOLOL MALEATE [Concomitant]
     Active Substance: TIMOLOL MALEATE
     Indication: Product used for unknown indication
     Dosage: 0.5 PERCENT
     Route: 065
  13. TRESIBA [Concomitant]
     Active Substance: INSULIN DEGLUDEC
     Indication: Product used for unknown indication
     Dosage: 100 INTERNATIONAL UNIT
     Route: 065
  14. CYANOCOBALAMIN [Concomitant]
     Active Substance: CYANOCOBALAMIN
     Indication: Product used for unknown indication
     Dosage: 1000
     Route: 065
  15. VITAMIN C [Concomitant]
     Active Substance: ASCORBIC ACID
     Indication: Product used for unknown indication
     Dosage: 1000 MILLIGRAM
     Route: 065
  16. VITAMIN D3 [Concomitant]
     Active Substance: CHOLECALCIFEROL
     Indication: Product used for unknown indication
     Dosage: 5000 INTERNATIONAL UNIT
     Route: 065
  17. ZINC [Concomitant]
     Active Substance: PYRITHIONE ZINC\ZINC\ZINC CHLORIDE
     Indication: Product used for unknown indication
     Dosage: 50 MILLIGRAM
     Route: 065

REACTIONS (1)
  - Death [Fatal]
